FAERS Safety Report 5762088-5 (Version None)
Quarter: 2008Q2

REPORT INFORMATION
  Report Type: 
  Country: None (occurrence: None)
  Receive Date: 20080604
  Receipt Date: 20080527
  Transmission Date: 20081010
  Serious: Yes (Other)
  Sender: FDA-Public Use
  Company Number: CHNY2008JP02122

PATIENT
  Sex: Male

DRUGS (2)
  1. NICOTINE [Suspect]
     Indication: SMOKING CESSATION THERAPY
     Dosage: 14 MG, QD, TRANSDERMAL; 7 MG, QD, TRANSDERMAL
     Route: 062
     Dates: start: 20070701, end: 20070801
  2. NICOTINE [Suspect]
     Indication: SMOKING CESSATION THERAPY
     Dosage: 14 MG, QD, TRANSDERMAL; 7 MG, QD, TRANSDERMAL
     Route: 062
     Dates: start: 20070801, end: 20070820

REACTIONS (1)
  - CEREBROVASCULAR ACCIDENT [None]
